FAERS Safety Report 9444715 (Version 2)
Quarter: 2013Q3

REPORT INFORMATION
  Report Type: Spontaneous
  Country: US (occurrence: US)
  Receive Date: 20130807
  Receipt Date: 20130827
  Transmission Date: 20140515
  Serious: No
  Sender: FDA-Public Use
  Company Number: US-ROXANE LABORATORIES, INC.-2013-RO-01310RO

PATIENT
  Age: 65 Year
  Sex: Female
  Weight: 89 kg

DRUGS (9)
  1. FLECAINIDE [Suspect]
     Indication: ATRIAL FIBRILLATION
     Dosage: 300 MG
     Route: 048
     Dates: start: 20130614, end: 20130725
  2. COUMADIN [Concomitant]
  3. LOSARTAN [Concomitant]
     Dosage: 50 MG
  4. AMLODIPINE [Concomitant]
     Dosage: 5 MG
  5. CRESTOR [Concomitant]
     Dosage: 20 MG
  6. ATENOLOL [Concomitant]
     Dosage: 50 MG
  7. SINGULAIR [Concomitant]
     Dosage: 10 MG
  8. VENLAFAXINE [Concomitant]
     Indication: HOT FLUSH
  9. LUNESTA [Concomitant]

REACTIONS (1)
  - Tremor [Recovered/Resolved]
